FAERS Safety Report 13469923 (Version 1)
Quarter: 2017Q2

REPORT INFORMATION
  Report Type: Spontaneous
  Country: US (occurrence: US)
  Receive Date: 20170422
  Receipt Date: 20170422
  Transmission Date: 20170830
  Serious: No
  Sender: FDA-Public Use
  Company Number: US-JNJFOC-20170415139

PATIENT
  Age: 89 Year
  Sex: Female
  Weight: 48.99 kg

DRUGS (1)
  1. TYLENOL EXTRA STRENGTH [Suspect]
     Active Substance: ACETAMINOPHEN
     Indication: PAIN
     Dosage: TOOK ONE DOSE AT 9 AM AND THEN TOOK ANOTHER AT 10:45 AM
     Route: 048
     Dates: start: 20170412

REACTIONS (2)
  - Inappropriate schedule of drug administration [Unknown]
  - Extra dose administered [Unknown]

NARRATIVE: CASE EVENT DATE: 20170412
